FAERS Safety Report 10038196 (Version 1)
Quarter: 2014Q1

REPORT INFORMATION
  Report Type: Spontaneous
  Country: US (occurrence: None)
  Receive Date: 20140306
  Receipt Date: 20140306
  Transmission Date: 20141002
  Serious: Yes (Hospitalization, Other)
  Sender: FDA-Public Use
  Company Number: 163-21880-12121874

PATIENT
  Age: 82 Year
  Sex: Female
  Weight: 73.5 kg

DRUGS (7)
  1. REVLIMID [Suspect]
     Indication: PLASMA CELL MYELOMA
     Dosage: 10 MG, 14 IN 21 D , PO 09/14/2012 - UNKNOWN THERAPY DATES
     Route: 048
     Dates: start: 20120914
  2. ASPIRIN (ACETYLSALICYLIC ACID) [Concomitant]
  3. CYANOCOBALAMIN [Concomitant]
  4. ENOXAPARIN [Concomitant]
  5. HUMULIN (NOVOLIN 20/80) [Concomitant]
  6. LOSARTAN POTASSIUM [Concomitant]
  7. ONDANSETRON [Concomitant]

REACTIONS (7)
  - Deep vein thrombosis [None]
  - Pulmonary embolism [None]
  - Blood glucose decreased [None]
  - Weight decreased [None]
  - Fall [None]
  - Nausea [None]
  - Fatigue [None]
